FAERS Safety Report 6297214-5 (Version None)
Quarter: 2009Q3

REPORT INFORMATION
  Report Type: 
  Country: None (occurrence: None)
  Receive Date: 20090804
  Receipt Date: 20090804
  Transmission Date: 20100115
  Serious: Yes (Life-Threatening, Disabling, Other)
  Sender: FDA-Public Use
  Company Number: None

PATIENT
  Age: 59 Year
  Sex: Female
  Weight: 87.0906 kg

DRUGS (1)
  1. PREDNISONE TAB [Suspect]
     Indication: ARTHRITIS
     Dosage: 2 TABS ONCE A DAY, OR TAKE LESS IF YOU CAN 1 OR 1/2

REACTIONS (5)
  - ABASIA [None]
  - CUSHINGOID [None]
  - DIPLOPIA [None]
  - MALAISE [None]
  - WEIGHT INCREASED [None]
